FAERS Safety Report 24667834 (Version 3)
Quarter: 2025Q3

REPORT INFORMATION
  Report Type: Report from Study
  Country: US (occurrence: US)
  Receive Date: 20241127
  Receipt Date: 20250819
  Transmission Date: 20251021
  Serious: Yes (Other)
  Sender: TAKEDA
  Company Number: US-TAKEDA-2024TUS118238

PATIENT
  Age: 79 Year
  Sex: Male
  Weight: 79 kg

DRUGS (2)
  1. GLASSIA [Suspect]
     Active Substance: .ALPHA.1-PROTEINASE INHIBITOR HUMAN
     Indication: Alpha-1 antitrypsin deficiency
  2. GLASSIA [Suspect]
     Active Substance: .ALPHA.1-PROTEINASE INHIBITOR HUMAN
     Dosage: 60 MILLIGRAM/KILOGRAM 1/WEEK

REACTIONS (7)
  - Cerebrovascular accident [Unknown]
  - Arthralgia [Unknown]
  - Nerve injury [Unknown]
  - Spinal disorder [Unknown]
  - Illness [Recovered/Resolved]
  - Productive cough [Recovered/Resolved]
  - Back pain [Unknown]
